FAERS Safety Report 8443727-7 (Version None)
Quarter: 2012Q2

REPORT INFORMATION
  Report Type: 
  Country: None (occurrence: None)
  Receive Date: 20120618
  Receipt Date: 20120606
  Transmission Date: 20120825
  Serious: Yes (Hospitalization, Other)
  Sender: FDA-Public Use
  Company Number: CH-ELI_LILLY_AND_COMPANY-CH201206002589

PATIENT
  Age: 67 Year
  Sex: Male

DRUGS (17)
  1. RISPERDAL [Concomitant]
     Dosage: 1 MG, UNKNOWN
  2. NOZINAN [Concomitant]
     Indication: PSYCHOTIC DISORDER
     Dosage: 25 MG, QID
     Route: 048
  3. NEXIUM [Concomitant]
     Dosage: 20 MG, QD
     Route: 048
  4. PROSCAR [Concomitant]
     Dosage: 5 MG, QD
     Route: 048
  5. ZYPREXA [Suspect]
     Indication: PSYCHOTIC DISORDER
     Dosage: 5 MG, BID
     Route: 048
  6. RISPERDAL [Concomitant]
     Indication: PSYCHOTIC DISORDER
     Dosage: 4.5 MG, QD
     Route: 048
  7. RISPERDAL [Concomitant]
     Dosage: 2 MG, UNKNOWN
  8. DEPAKENE [Concomitant]
     Dosage: 750 MG, BID
     Route: 048
  9. CLONAZEPAM [Concomitant]
     Dosage: 0.5 MG, QD
     Route: 048
  10. TAMSULOSIN HCL [Concomitant]
     Dosage: 400 UG, QD
     Route: 048
  11. TOPAMAX [Concomitant]
     Dosage: 100 MG, QD
     Route: 048
  12. RISPERDAL [Concomitant]
     Dosage: 1.5 MG, UNKNOWN
  13. SERTRALINE HYDROCHLORIDE [Concomitant]
     Dosage: 50 MG, QD
     Route: 048
  14. AKINETON [Concomitant]
     Dosage: 4 MG, QD
     Route: 048
  15. ZOLPIDEM [Concomitant]
     Dosage: 10 MG, QD
     Route: 048
  16. MOVIPREP [Concomitant]
     Dosage: 1 DF, BID
     Route: 048
  17. ACETAMINOPHEN [Concomitant]
     Dosage: 1000 MG, TID
     Route: 048

REACTIONS (5)
  - GENERAL PHYSICAL HEALTH DETERIORATION [None]
  - PANCYTOPENIA [None]
  - SOMNOLENCE [None]
  - RENAL FAILURE ACUTE [None]
  - PNEUMONIA [None]
